FAERS Safety Report 5963385-0 (Version None)
Quarter: 2008Q4

REPORT INFORMATION
  Report Type: 
  Country: None (occurrence: None)
  Receive Date: 20081124
  Receipt Date: 20081117
  Transmission Date: 20090506
  Serious: Yes (Other)
  Sender: FDA-Public Use
  Company Number: B0546566A

PATIENT
  Age: 63 Year
  Sex: Male

DRUGS (5)
  1. REQUIP [Suspect]
     Indication: PARKINSON'S DISEASE
     Route: 065
  2. SELEGILINE HCL [Concomitant]
  3. CARBIDOPA AND LEVODOPA [Concomitant]
  4. AMANTADINE HCL [Concomitant]
  5. ENTACAPONE [Concomitant]

REACTIONS (1)
  - ON AND OFF PHENOMENON [None]
